FAERS Safety Report 17599160 (Version 1)
Quarter: 2020Q1

REPORT INFORMATION
  Report Type: Spontaneous
  Country: US (occurrence: US)
  Receive Date: 20200327
  Receipt Date: 20200327
  Transmission Date: 20200409
  Serious: No
  Sender: FDA-Public Use
  Company Number: None

PATIENT
  Sex: Female

DRUGS (2)
  1. PROCRIT [Suspect]
     Active Substance: ERYTHROPOIETIN
     Indication: ANAEMIA
     Dosage: ?          OTHER FREQUENCY:EVERY21DAYS ;?
     Route: 058
     Dates: start: 201609
  2. PROCRIT [Suspect]
     Active Substance: ERYTHROPOIETIN
     Indication: RENAL DISORDER
     Dosage: ?          OTHER FREQUENCY:EVERY21DAYS ;?
     Route: 058
     Dates: start: 201609

REACTIONS (1)
  - Wrong technique in product usage process [None]
